FAERS Safety Report 25887871 (Version 1)
Quarter: 2025Q4

REPORT INFORMATION
  Report Type: Spontaneous
  Country: EU (occurrence: EU)
  Receive Date: 20251007
  Receipt Date: 20251007
  Transmission Date: 20260118
  Serious: Yes (Hospitalization, Other)
  Sender: BRISTOL-MYERS SQUIBB COMPANY
  Company Number: None

PATIENT
  Age: 40 Year
  Sex: Female

DRUGS (1)
  1. OPDIVO [Suspect]
     Active Substance: NIVOLUMAB
     Indication: Gingival cancer
     Dosage: 240 MG/EVERY 14 DAYS
     Dates: start: 20250121

REACTIONS (2)
  - Seizure [Unknown]
  - Asthenia [Unknown]

NARRATIVE: CASE EVENT DATE: 20250127
